FAERS Safety Report 8532243-X (Version None)
Quarter: 2012Q3

REPORT INFORMATION
  Report Type: 
  Country: None (occurrence: None)
  Receive Date: 20120723
  Receipt Date: 20120711
  Transmission Date: 20120928
  Serious: Yes (Other)
  Sender: FDA-Public Use
  Company Number: RO-009507513-1207ROM005591

PATIENT

DRUGS (1)
  1. ALENDRONATE SODIUM [Suspect]
     Dosage: UNK
     Route: 048
     Dates: start: 20120501

REACTIONS (1)
  - INFLAMMATORY BOWEL DISEASE [None]
